FAERS Safety Report 10131068 (Version 2)
Quarter: 2015Q1

REPORT INFORMATION
  Report Type: Other
  Country: US (occurrence: US)
  Receive Date: 20140428
  Receipt Date: 20150216
  Transmission Date: 20150720
  Serious: Yes (Death, Hospitalization, Other)
  Sender: FDA-Public Use
  Company Number: US-GSKPPD-2014GSK035630

PATIENT
  Age: 56 Year
  Sex: Male

DRUGS (9)
  1. PLAVIX [Concomitant]
     Active Substance: CLOPIDOGREL BISULFATE
     Dates: start: 20091117
  2. NITRO-BID 2% [Concomitant]
     Route: 061
     Dates: start: 200911
  3. AVANDIA [Suspect]
     Active Substance: ROSIGLITAZONE MALEATE
     Indication: DIABETES MELLITUS
     Dosage: DATES OF AVANDIA USE COULD NOT BE CONFIRMED IN RECORDS REVIEWED.
     Route: 048
  4. ACCUPRIL [Concomitant]
     Active Substance: QUINAPRIL HYDROCHLORIDE
     Dates: start: 20091120
  5. LASIX [Concomitant]
     Active Substance: FUROSEMIDE
     Dates: start: 20091120
  6. METOPROLOL [Concomitant]
     Active Substance: METOPROLOL
     Dates: start: 20091120
  7. VIAGRA [Concomitant]
     Active Substance: SILDENAFIL CITRATE
     Dates: end: 20091120
  8. ASPIRIN. [Concomitant]
     Active Substance: ASPIRIN
     Dates: start: 20091120
  9. NITROLINGUAL [Concomitant]
     Active Substance: NITROGLYCERIN
     Route: 060

REACTIONS (3)
  - Myocardial infarction [Unknown]
  - Cardiac arrest [Fatal]
  - Coronary artery disease [Recovered/Resolved]

NARRATIVE: CASE EVENT DATE: 20091116
